FAERS Safety Report 14459558 (Version 3)
Quarter: 2018Q1

REPORT INFORMATION
  Report Type: Spontaneous
  Country: FR (occurrence: FR)
  Receive Date: 20180130
  Receipt Date: 20180130
  Transmission Date: 20180509
  Serious: Yes (Hospitalization)
  Sender: FDA-Public Use
  Company Number: PHHY2018FR013366

PATIENT
  Age: 27 Year
  Sex: Male

DRUGS (2)
  1. CHIBRO CADRON [Suspect]
     Active Substance: DEXAMETHASONE SODIUM PHOSPHATE\NEOMYCIN SULFATE
     Indication: PROPHYLAXIS
     Dosage: 1 GTT, QD
     Route: 031
     Dates: start: 20171009, end: 20171009
  2. TOBREX [Suspect]
     Active Substance: TOBRAMYCIN
     Indication: PROPHYLAXIS
     Dosage: 1 GTT, QD
     Route: 031
     Dates: start: 20171009, end: 20171009

REACTIONS (1)
  - Keratitis [Not Recovered/Not Resolved]

NARRATIVE: CASE EVENT DATE: 20171009
